FAERS Safety Report 13300930 (Version 3)
Quarter: 2018Q4

REPORT INFORMATION
  Report Type: Spontaneous
  Country: US (occurrence: US)
  Receive Date: 20170307
  Receipt Date: 20181209
  Transmission Date: 20190204
  Serious: Yes (Life-Threatening, Hospitalization, Other)
  Sender: FDA-Public Use
  Company Number: US-AUROBINDO-AUR-APL-2017-30377

PATIENT
  Age: 5 Decade
  Sex: Female

DRUGS (9)
  1. BACLOFEN. [Suspect]
     Active Substance: BACLOFEN
     Indication: BACK PAIN
     Dosage: UNK, INTRATHECAL PUMP
     Route: 037
  2. OXYCODONE 15MG [Suspect]
     Active Substance: OXYCODONE
     Dosage: 780 MG, ESCALATED NEARLY 9-FOLD; MORPHINE EQUIVALENT DAILY DOSE
     Route: 065
  3. HYDROMORPHONE [Suspect]
     Active Substance: HYDROMORPHONE
     Indication: BACK PAIN
     Dosage: UNK, INTRATHECAL PUMP
     Route: 037
  4. OXYCODONE 15MG [Suspect]
     Active Substance: OXYCODONE
     Dosage: 1620 MG, MORPHINE EQUIVALENT DAILY DOSE
     Route: 065
  5. OXYCODONE 15MG [Suspect]
     Active Substance: OXYCODONE
     Indication: BACK PAIN
     Dosage: 15 MG, FOUR TIMES/DAY 90 MG OF MORPHINE EQUIVALENT DAILY DOSE (MEDD)
     Route: 065
  6. LORAZEPAM. [Concomitant]
     Active Substance: LORAZEPAM
     Indication: PRODUCT USED FOR UNKNOWN INDICATION
     Dosage: UNK
     Route: 065
  7. BACLOFEN. [Suspect]
     Active Substance: BACLOFEN
     Dosage: UNK, INTRATHECAL PUMP; ESCALATED DOSES
     Route: 037
  8. HYDROMORPHONE [Suspect]
     Active Substance: HYDROMORPHONE
     Dosage: UNK
     Route: 048
  9. CARISOPRODOL. [Concomitant]
     Active Substance: CARISOPRODOL
     Indication: PRODUCT USED FOR UNKNOWN INDICATION
     Dosage: UNK
     Route: 065

REACTIONS (6)
  - Early satiety [Unknown]
  - Narcotic bowel syndrome [Unknown]
  - Overdose [Unknown]
  - Respiratory failure [Unknown]
  - Weight decreased [Unknown]
  - Abdominal pain [Unknown]
